FAERS Safety Report 4625351-7 (Version None)
Quarter: 2005Q2

REPORT INFORMATION
  Report Type: 
  Country: None (occurrence: None)
  Receive Date: 20050401
  Receipt Date: 20050322
  Transmission Date: 20051028
  Serious: Yes (Hospitalization)
  Sender: FDA-Public Use
  Company Number: DE-GLAXOSMITHKLINE-B0375703A

PATIENT
  Age: 73 Year
  Sex: Male
  Weight: 94 kg

DRUGS (4)
  1. DUTASTERIDE [Suspect]
     Indication: NEOPLASM PROPHYLAXIS
     Dosage: .5MG PER DAY
     Route: 048
     Dates: start: 20041019, end: 20050222
  2. ACETYLSALICYLIC ACID SRT [Suspect]
     Indication: THROMBOSIS PROPHYLAXIS
     Dosage: 100MG PER DAY
     Route: 048
     Dates: start: 19940101, end: 20050125
  3. DICLAC [Suspect]
     Indication: SPINAL DISORDER
     Dosage: 75MG AS REQUIRED
     Route: 048
     Dates: start: 19940101, end: 20050209
  4. AVANDAMET [Concomitant]
     Indication: DIABETES MELLITUS
     Dosage: 1MG THREE TIMES PER DAY
     Route: 048
     Dates: start: 20000101

REACTIONS (2)
  - GASTRIC ULCER [None]
  - TRANSIENT ISCHAEMIC ATTACK [None]
